FAERS Safety Report 8244704-1 (Version None)
Quarter: 2012Q1

REPORT INFORMATION
  Report Type: 
  Country: None (occurrence: None)
  Receive Date: 20120329
  Receipt Date: 20110425
  Transmission Date: 20120608
  Serious: No
  Sender: FDA-Public Use
  Company Number: US-MYLANLABS-2011S1002703

PATIENT
  Age: 48 Year
  Sex: Male
  Weight: 79.38 kg

DRUGS (6)
  1. LYRICA [Concomitant]
     Route: 048
  2. AMBIEN [Concomitant]
     Route: 048
  3. CRESTOR [Concomitant]
     Indication: BLOOD CHOLESTEROL ABNORMAL
     Route: 048
  4. FENTANYL-100 [Suspect]
     Indication: FIBROMYALGIA
     Dosage: CHANGED Q48H
     Route: 062
     Dates: start: 20100401, end: 20100401
  5. FENTANYL-100 [Suspect]
     Indication: PAIN
     Dosage: CHANGED Q48H
     Route: 062
     Dates: start: 20100401, end: 20100401
  6. MORPHINE SULFATE [Concomitant]
     Route: 048

REACTIONS (4)
  - MUSCLE TWITCHING [None]
  - MUSCLE SPASMS [None]
  - FORMICATION [None]
  - DRUG WITHDRAWAL SYNDROME [None]
